FAERS Safety Report 4766066-4 (Version None)
Quarter: 2005Q3

REPORT INFORMATION
  Report Type: 
  Country: None (occurrence: None)
  Receive Date: 20050912
  Receipt Date: 20031023
  Transmission Date: 20060218
  Serious: Yes (Other)
  Sender: FDA-Public Use
  Company Number: PHFR2003GB05061

PATIENT

DRUGS (1)
  1. EXELON [Suspect]
     Dosage: 6 MG, BID

REACTIONS (2)
  - DRUG LEVEL INCREASED [None]
  - KIDNEY INFECTION [None]
